FAERS Safety Report 5425826-7 (Version None)
Quarter: 2007Q3

REPORT INFORMATION
  Report Type: 
  Country: None (occurrence: None)
  Receive Date: 20070827
  Receipt Date: 20070823
  Transmission Date: 20080115
  Serious: Yes (Other)
  Sender: FDA-Public Use
  Company Number: PHRM2007FR02070

PATIENT
  Sex: Female

DRUGS (1)
  1. GLEEVEC [Suspect]
     Route: 048
     Dates: start: 20020101

REACTIONS (3)
  - DEAFNESS [None]
  - NEUROPATHY PERIPHERAL [None]
  - PARAESTHESIA [None]
